FAERS Safety Report 7340600-2 (Version None)
Quarter: 2011Q1

REPORT INFORMATION
  Report Type: 
  Country: None (occurrence: None)
  Receive Date: 20110309
  Receipt Date: 20110301
  Transmission Date: 20110831
  Serious: Yes (Hospitalization, Other)
  Sender: FDA-Public Use
  Company Number: US-AMGEN-USASP2011011743

PATIENT
  Age: 62 Year
  Sex: Female

DRUGS (1)
  1. ENBREL [Suspect]
     Indication: RHEUMATOID ARTHRITIS
     Dosage: 50 MG, QWK
     Dates: start: 19980101

REACTIONS (17)
  - JOINT SURGERY [None]
  - SKIN DISCOLOURATION [None]
  - EXOSTOSIS [None]
  - BALANCE DISORDER [None]
  - MEMORY IMPAIRMENT [None]
  - CARPAL TUNNEL SYNDROME [None]
  - DISTURBANCE IN ATTENTION [None]
  - OEDEMA PERIPHERAL [None]
  - RHEUMATOID ARTHRITIS [None]
  - ARTHRALGIA [None]
  - GENITAL PROLAPSE [None]
  - THROMBOSIS [None]
  - DYSPHEMIA [None]
  - SLEEP STUDY ABNORMAL [None]
  - PULMONARY EMBOLISM [None]
  - HAND REPAIR OPERATION [None]
  - SWELLING [None]
